FAERS Safety Report 16339079 (Version 2)
Quarter: 2019Q2

REPORT INFORMATION
  Report Type: Report from Study
  Country: US (occurrence: US)
  Receive Date: 20190521
  Receipt Date: 20190529
  Transmission Date: 20190711
  Serious: Yes (Death, Life-Threatening, Hospitalization)
  Sender: FDA-Public Use
  Company Number: US-UCBSA-093575

PATIENT
  Age: 71 Year
  Sex: Male
  Weight: 57 kg

DRUGS (45)
  1. FLAGYL [Concomitant]
     Active Substance: METRONIDAZOLE\METRONIDAZOLE HYDROCHLORIDE
     Indication: CROHN^S DISEASE
  2. VANCOMYCIN [Concomitant]
     Active Substance: VANCOMYCIN
     Indication: SEPSIS
     Dosage: 750 MG, 3X/DAY (TID)
     Route: 042
     Dates: end: 20130411
  3. CITRACAL PLUS D [Concomitant]
     Indication: CROHN^S DISEASE
     Dosage: CALCIUM 800 MG, VITAMIN D 200U
  4. NITROSTAT [Concomitant]
     Active Substance: NITROGLYCERIN
     Dosage: DAILY 0.5 MG
     Route: 048
  5. TYLENOL [Concomitant]
     Active Substance: ACETAMINOPHEN
  6. HYDROCHLOROTHIAZIDE. [Concomitant]
     Active Substance: HYDROCHLOROTHIAZIDE
     Indication: HYPERTENSION
     Dosage: 75 MILLIGRAM, ONCE DAILY (QD)
     Route: 048
  7. CLARITIN [Concomitant]
     Active Substance: LORATADINE
     Indication: HYPERSENSITIVITY
     Dosage: 10 MILLIGRAM, ONCE DAILY (QD)
     Route: 048
  8. PULMICORT TURBUHALER [Concomitant]
     Active Substance: BUDESONIDE
     Indication: ASTHMA
  9. MESALAMINE. [Concomitant]
     Active Substance: MESALAMINE
     Dosage: 1 G, ONCE DAILY (QD)
     Route: 048
     Dates: start: 20080624, end: 20130411
  10. SOLU-MEDROL [Concomitant]
     Active Substance: METHYLPREDNISOLONE SODIUM SUCCINATE
     Indication: CHRONIC OBSTRUCTIVE PULMONARY DISEASE
     Dosage: 80 MG, ONCE DAILY (QD)
     Route: 042
     Dates: end: 20130411
  11. MULTIVITAMIN [Concomitant]
     Active Substance: VITAMINS
     Indication: CROHN^S DISEASE
  12. BROVANA [Concomitant]
     Active Substance: ARFORMOTEROL TARTRATE
     Dosage: 15 ?G, 2X/DAY (BID)
     Route: 055
  13. DUONEB [Concomitant]
     Active Substance: ALBUTEROL SULFATE\IPRATROPIUM BROMIDE
  14. NARCAN [Concomitant]
     Active Substance: NALOXONE HYDROCHLORIDE
  15. FENTANYL. [Concomitant]
     Active Substance: FENTANYL
  16. MESALAMINE. [Concomitant]
     Active Substance: MESALAMINE
     Indication: CROHN^S DISEASE
     Dosage: UNK
     Dates: start: 19990312, end: 20040628
  17. OMEGA 3 [Concomitant]
     Active Substance: OMEGA-3 FATTY ACIDS
     Indication: CROHN^S DISEASE
  18. IMODIUM [Concomitant]
     Active Substance: LOPERAMIDE HYDROCHLORIDE
     Indication: DIARRHOEA
  19. CALCIUM [Concomitant]
     Active Substance: CALCIUM
     Indication: OSTEOPOROSIS
     Dosage: 500 MILLIGRAM, ONCE DAILY (QD)
     Route: 048
  20. CERTOLIZUMAB PEGOL [Suspect]
     Active Substance: CERTOLIZUMAB PEGOL
     Indication: CROHN^S DISEASE
     Dosage: 400 MILLIGRAM
     Route: 058
     Dates: start: 20110222, end: 20130412
  21. AMIODARONE [Concomitant]
     Active Substance: AMIODARONE
     Indication: ARRHYTHMIA
     Dosage: 200 MG, ONCE DAILY (QD)
     Route: 048
     Dates: end: 20130411
  22. SYNTHROID [Concomitant]
     Active Substance: LEVOTHYROXINE SODIUM
     Indication: HYPOTHYROIDISM
     Dosage: 125 ?G, ONCE DAILY (QD)
     Route: 048
     Dates: end: 20130411
  23. ENTOCORT EC [Concomitant]
     Active Substance: BUDESONIDE
     Dosage: 9 MG DAILY
  24. FLONASE [Concomitant]
     Active Substance: FLUTICASONE PROPIONATE
     Indication: HYPERSENSITIVITY
     Dosage: 2 PUFFS QD
     Dates: end: 20130411
  25. SPIRIVA [Concomitant]
     Active Substance: TIOTROPIUM BROMIDE MONOHYDRATE
     Indication: CHRONIC OBSTRUCTIVE PULMONARY DISEASE
     Dosage: 1 DF, ONCE DAILY (QD)
     Dates: end: 20130411
  26. SPIRIVA [Concomitant]
     Active Substance: TIOTROPIUM BROMIDE MONOHYDRATE
     Indication: ASTHMA
  27. BOOST [Concomitant]
     Active Substance: DIETARY SUPPLEMENT
     Indication: CROHN^S DISEASE
  28. ALBUTEROL. [Concomitant]
     Active Substance: ALBUTEROL
     Dosage: 2 PUFFS, ONCE EVERY 4 HOURS
  29. FIORICET [Concomitant]
     Active Substance: ACETAMINOPHEN\BUTALBITAL\CAFFEINE
     Indication: PAIN
     Dosage: 40 MILLIGRAM, ONCE DAILY (QD)
  30. PULMICORT TURBUHALER [Concomitant]
     Active Substance: BUDESONIDE
     Indication: CHRONIC OBSTRUCTIVE PULMONARY DISEASE
     Dosage: 0.5 MG 2 PUFFS BID
     Dates: end: 20130411
  31. PREDNISONE. [Concomitant]
     Active Substance: PREDNISONE
     Indication: CROHN^S DISEASE
     Dates: start: 20100214
  32. MICARDIS [Concomitant]
     Active Substance: TELMISARTAN
     Dosage: 40 MG, 2X/DAY (BID)
     Route: 048
  33. VITAMIN B12 [Concomitant]
     Active Substance: CYANOCOBALAMIN
     Dosage: UNK UNK, MONTHLY (QM)
  34. TOPROL XL [Concomitant]
     Active Substance: METOPROLOL SUCCINATE
     Indication: ARRHYTHMIA SUPRAVENTRICULAR
     Dosage: 25 MILLIGRAM, ONCE DAILY (QD)
     Route: 048
  35. FLAGYL [Concomitant]
     Active Substance: METRONIDAZOLE\METRONIDAZOLE HYDROCHLORIDE
     Indication: DIARRHOEA
     Dosage: 500 MG, 3X/DAY (TID)
     Route: 042
     Dates: end: 20130411
  36. PREDNISONE. [Concomitant]
     Active Substance: PREDNISONE
     Dosage: UNK
     Dates: start: 19991203, end: 20000609
  37. POTASSIUM CITRATE. [Concomitant]
     Active Substance: POTASSIUM CITRATE
     Indication: CROHN^S DISEASE
  38. ASPIRIN. [Concomitant]
     Active Substance: ASPIRIN
     Indication: CROHN^S DISEASE
  39. ASCORBIC ACID. [Concomitant]
     Active Substance: ASCORBIC ACID
     Dosage: 250 MG DAILY
     Route: 048
  40. DOXAZOSIN [Concomitant]
     Active Substance: DOXAZOSIN\DOXAZOSIN MESYLATE
     Indication: BENIGN PROSTATIC HYPERPLASIA
     Dosage: 4 MILLIGRAM, ONCE DAILY (QD)
     Route: 048
  41. ENTOCORT [Concomitant]
     Active Substance: BUDESONIDE
     Indication: CROHN^S DISEASE
     Dosage: 9 MG, ONCE DAILY (QD)
     Route: 048
     Dates: end: 20130411
  42. CEFEPIME [Concomitant]
     Active Substance: CEFEPIME HYDROCHLORIDE
     Indication: PNEUMONIA
     Dosage: UNK UNK, ONCE DAILY (QD)
     Route: 042
     Dates: end: 20130411
  43. PROTONIX [Concomitant]
     Active Substance: PANTOPRAZOLE SODIUM
     Indication: PEPTIC ULCER
     Dosage: 40 MG, ONCE DAILY (QD)
     Route: 048
     Dates: end: 20130411
  44. BUDESONIDE. [Concomitant]
     Active Substance: BUDESONIDE
     Indication: CROHN^S DISEASE
     Dates: start: 20090121
  45. DIGOXIN. [Concomitant]
     Active Substance: DIGOXIN

REACTIONS (2)
  - Chronic obstructive pulmonary disease [Fatal]
  - Urosepsis [Recovered/Resolved]

NARRATIVE: CASE EVENT DATE: 20111227
